FAERS Safety Report 8797204 (Version 1)
Quarter: 2012Q4

REPORT INFORMATION
  Report Type: 
  Country: GB (occurrence: GB)
  Receive Date: 20120919
  Receipt Date: 20120919
  Transmission Date: 20130627
  Serious: Yes (Other)
  Sender: FDA-Public Use
  Company Number: GB-WATSON-2012-16001

PATIENT
  Age: 70 Year
  Sex: Female

DRUGS (2)
  1. ALENDRONATE SODIUM- (UNKNOWN) [Suspect]
     Indication: OSTEOPOROSIS
     Dosage: UNK
     Route: 055
  2. ALENDRONATE SODIUM- (UNKNOWN) [Suspect]
     Dosage: UNK
     Route: 048

REACTIONS (1)
  - Bronchiectasis [Recovered/Resolved]
